FAERS Safety Report 5632725-4 (Version None)
Quarter: 2008Q1

REPORT INFORMATION
  Report Type: 
  Country: None (occurrence: None)
  Receive Date: 20080221
  Receipt Date: 20080212
  Transmission Date: 20080703
  Serious: Yes (Other)
  Sender: FDA-Public Use
  Company Number: CA-JNJFOC-20080202929

PATIENT

DRUGS (2)
  1. ELMIRON [Suspect]
     Indication: DRUG USE FOR UNKNOWN INDICATION
     Route: 065
  2. BIAXIN [Interacting]
     Indication: LOWER RESPIRATORY TRACT INFECTION
     Route: 065

REACTIONS (3)
  - BLADDER PAIN [None]
  - DRUG INTERACTION [None]
  - LOWER RESPIRATORY TRACT INFECTION [None]
